FAERS Safety Report 16662139 (Version 1)
Quarter: 2019Q3

REPORT INFORMATION
  Report Type: Spontaneous
  Country: US (occurrence: US)
  Receive Date: 20190802
  Receipt Date: 20190802
  Transmission Date: 20191004
  Serious: Yes (Disabling, Other)
  Sender: FDA-Public Use
  Company Number: None

PATIENT
  Age: 42 Year
  Sex: Male
  Weight: 114.75 kg

DRUGS (8)
  1. CYMBALTA [Concomitant]
     Active Substance: DULOXETINE HYDROCHLORIDE
  2. WELLBUTRIN [Concomitant]
     Active Substance: BUPROPION HYDROCHLORIDE
  3. CENTRUM [Concomitant]
     Active Substance: VITAMINS
  4. DULOXETINE. [Suspect]
     Active Substance: DULOXETINE
     Indication: DEPRESSION
     Dosage: ?          QUANTITY:1 CAPSULE(S);?
     Route: 048
     Dates: start: 20151211, end: 20190729
  5. FISH OIL [Concomitant]
     Active Substance: FISH OIL
  6. GABAPENTIN. [Concomitant]
     Active Substance: GABAPENTIN
  7. DULOXETINE. [Suspect]
     Active Substance: DULOXETINE
     Indication: NECK PAIN
     Dosage: ?          QUANTITY:1 CAPSULE(S);?
     Route: 048
     Dates: start: 20151211, end: 20190729
  8. DULOXETINE. [Suspect]
     Active Substance: DULOXETINE
     Indication: ANXIETY
     Dosage: ?          QUANTITY:1 CAPSULE(S);?
     Route: 048
     Dates: start: 20151211, end: 20190729

REACTIONS (6)
  - Paraesthesia [None]
  - Depressed level of consciousness [None]
  - Psychotic disorder [None]
  - Withdrawal syndrome [None]
  - Neurological symptom [None]
  - Dizziness [None]

NARRATIVE: CASE EVENT DATE: 20190801
